FAERS Safety Report 8799662 (Version 2)
Quarter: 2013Q4

REPORT INFORMATION
  Report Type: Spontaneous
  Country: US (occurrence: US)
  Receive Date: 20120919
  Receipt Date: 20131031
  Transmission Date: 20140711
  Serious: Yes (Other)
  Sender: FDA-Public Use
  Company Number: US-009507513-1209USA003173

PATIENT
  Sex: Female

DRUGS (5)
  1. ISENTRESS [Suspect]
     Route: 048
  2. INTELENCE [Suspect]
     Route: 048
  3. TRUVADA [Suspect]
     Dosage: UNK
     Route: 048
  4. TRUVADA [Suspect]
     Dosage: UNK
     Route: 048
  5. PREDNISOLONE [Concomitant]
     Route: 048

REACTIONS (6)
  - Gastric ulcer [Unknown]
  - Oral candidiasis [Unknown]
  - Liver disorder [Unknown]
  - Back pain [Unknown]
  - Rash [Unknown]
  - Insomnia [Unknown]
